FAERS Safety Report 22047199 (Version 2)
Quarter: 2023Q1

REPORT INFORMATION
  Report Type: Spontaneous
  Country: US (occurrence: US)
  Receive Date: 20230301
  Receipt Date: 20230306
  Transmission Date: 20230417
  Serious: No
  Sender: FDA-Public Use
  Company Number: US-002147023-NVSC2023US045746

PATIENT
  Sex: Female

DRUGS (1)
  1. ESTRADIOL [Suspect]
     Active Substance: ESTRADIOL
     Indication: Product used for unknown indication
     Dosage: UNK, BIW
     Route: 062

REACTIONS (5)
  - Dermal absorption impaired [Unknown]
  - Crying [Unknown]
  - Feeling abnormal [Unknown]
  - Headache [Unknown]
  - Therapy non-responder [Unknown]
